FAERS Safety Report 5192383-2 (Version None)
Quarter: 2006Q4

REPORT INFORMATION
  Report Type: 
  Country: None (occurrence: None)
  Receive Date: 20061227
  Receipt Date: 20061219
  Transmission Date: 20070319
  Serious: Yes (Hospitalization)
  Sender: FDA-Public Use
  Company Number: JP-PFIZER INC-2006154676

PATIENT
  Age: 53 Year
  Sex: Female

DRUGS (1)
  1. SULFASALAZINE [Suspect]
     Indication: COLITIS ULCERATIVE
     Dosage: DAILY DOSE:4GRAM
     Route: 048

REACTIONS (3)
  - LYMPHOCYTE MORPHOLOGY ABNORMAL [None]
  - PYREXIA [None]
  - RASH [None]
